FAERS Safety Report 8043590-2 (Version None)
Quarter: 2012Q1

REPORT INFORMATION
  Report Type: 
  Country: None (occurrence: None)
  Receive Date: 20120112
  Receipt Date: 20120106
  Transmission Date: 20120608
  Serious: No
  Sender: FDA-Public Use
  Company Number: US-US-EMD SERONO, INC.-7102554

PATIENT
  Sex: Female
  Weight: 70 kg

DRUGS (6)
  1. SPIRIVA [Concomitant]
     Indication: RESPIRATION ABNORMAL
  2. REBIF [Suspect]
     Indication: MULTIPLE SCLEROSIS
     Route: 058
     Dates: start: 20110620
  3. VICODIN [Concomitant]
     Indication: PAIN
     Dosage: 5/500
  4. NEURONTIN [Concomitant]
     Indication: PAIN
  5. TOVIAZ [Concomitant]
     Indication: BLADDER DISORDER
  6. VITAMIN B-12 [Concomitant]
     Indication: VITAMIN B12 DEFICIENCY

REACTIONS (13)
  - INJECTION SITE PAIN [None]
  - INSOMNIA [None]
  - PYREXIA [None]
  - FEELING ABNORMAL [None]
  - PAIN [None]
  - CHILLS [None]
  - FALL [None]
  - INJECTION SITE ERYTHEMA [None]
  - FAECAL INCONTINENCE [None]
  - MUSCULAR WEAKNESS [None]
  - VISUAL ACUITY REDUCED [None]
  - ABDOMINAL HERNIA [None]
  - INJECTION SITE NODULE [None]
